FAERS Safety Report 8037875-3 (Version None)
Quarter: 2012Q1

REPORT INFORMATION
  Report Type: 
  Country: None (occurrence: None)
  Receive Date: 20120111
  Receipt Date: 20120106
  Transmission Date: 20120608
  Serious: Yes (Death)
  Sender: FDA-Public Use
  Company Number: GB-ROCHE-1028446

PATIENT
  Sex: Male
  Weight: 71 kg

DRUGS (11)
  1. MABTHERA [Suspect]
     Indication: ACUTE LYMPHOCYTIC LEUKAEMIA
     Route: 042
     Dates: start: 20111222, end: 20111227
  2. ALLOPURINOL [Concomitant]
     Indication: PROPHYLAXIS
     Route: 048
     Dates: start: 20111213, end: 20120103
  3. DEXAMETHASONE TAB [Concomitant]
     Dates: start: 20111220, end: 20111228
  4. AMPHOTERICIN B [Concomitant]
     Indication: PROPHYLAXIS
     Route: 042
     Dates: start: 20111221, end: 20111228
  5. DEXAMETHASONE TAB [Concomitant]
     Indication: ACUTE LYMPHOCYTIC LEUKAEMIA
     Route: 048
     Dates: start: 20111213, end: 20111220
  6. IMATINIB MESYLATE [Concomitant]
     Route: 048
  7. ACYCLOVIR [Concomitant]
     Indication: PROPHYLAXIS
     Route: 048
     Dates: start: 20111213, end: 20120103
  8. COTRIM [Concomitant]
     Indication: PROPHYLAXIS
     Route: 048
     Dates: start: 20111221, end: 20120103
  9. PEGASPARGASE [Suspect]
     Indication: ACUTE LYMPHOCYTIC LEUKAEMIA
     Route: 042
     Dates: start: 20111223, end: 20111223
  10. PIPERACILLIN AND TAZOBACTAM [Concomitant]
     Indication: INFECTION
     Route: 042
     Dates: start: 20111213, end: 20111215
  11. CIPROFLOXACIN [Concomitant]
     Indication: INFECTION
     Route: 048
     Dates: start: 20111215, end: 20111222

REACTIONS (1)
  - ENTEROCOLITIS [None]
